FAERS Safety Report 9474883 (Version 2)
Quarter: 2013Q4

REPORT INFORMATION
  Report Type: Spontaneous
  Country: IN (occurrence: IN)
  Receive Date: 20130823
  Receipt Date: 20131001
  Transmission Date: 20140711
  Serious: Yes (Hospitalization, Other)
  Sender: FDA-Public Use
  Company Number: IN-ROCHE-1265274

PATIENT
  Age: 75 Year
  Sex: Male
  Weight: 75 kg

DRUGS (5)
  1. METALYSE [Suspect]
     Indication: MYOCARDIAL INFARCTION
     Dosage: 38
     Route: 065
  2. METALYSE [Suspect]
     Indication: CHEST PAIN
  3. ENOXAPARIN [Concomitant]
  4. AMOXYPEN [Concomitant]
  5. ASPIRIN [Concomitant]

REACTIONS (2)
  - Drug ineffective [Unknown]
  - Chest pain [Unknown]
